FAERS Safety Report 8404025 (Version 2)
Quarter: 2013Q2

REPORT INFORMATION
  Report Type: Spontaneous
  Country: US (occurrence: None)
  Receive Date: 20111227
  Receipt Date: 20120426
  Transmission Date: 20140414
  Serious: Yes (Other)
  Sender: FDA-Public Use
  Company Number: PHEH2011US008751

PATIENT
  Sex: Female

DRUGS (3)
  1. GILENYA [Suspect]
     Indication: MULTIPLE SCLEROSIS
     Route: 048
     Dates: start: 20110113, end: 20110706
  2. MAXALT (RIZATRIPTAN) [Concomitant]
  3. IBUPROFEN (IBUPROFEN) [Concomitant]

REACTIONS (5)
  - DYSPNOEA [None]
  - CARBON MONOXIDE DIFFUSING CAPACITY DECREASED [None]
  - Chest discomfort [None]
  - Lymphopenia [None]
  - White blood cell count decreased [None]
